FAERS Safety Report 12741839 (Version 1)
Quarter: 2016Q3

REPORT INFORMATION
  Report Type: Spontaneous
  Country: US (occurrence: US)
  Receive Date: 20160913
  Receipt Date: 20160913
  Transmission Date: 20161109
  Serious: Yes (Disabling, Other)
  Sender: FDA-Public Use
  Company Number: None

PATIENT
  Age: 65 Year
  Weight: 80.1 kg

DRUGS (7)
  1. VITAMIN B12 [Concomitant]
     Active Substance: CYANOCOBALAMIN
  2. AUGMENTIN [Suspect]
     Active Substance: AMOXICILLIN\CLAVULANATE POTASSIUM
     Indication: INFECTION PROPHYLAXIS
     Route: 048
     Dates: start: 20160104, end: 20160110
  3. SENEKOT [Concomitant]
  4. CALCIUM AND D3 [Concomitant]
  5. NON-CONSTIPATING IRON [Concomitant]
  6. VITAMIN B [Concomitant]
     Active Substance: VITAMIN B
  7. COENZYME Q10 [Concomitant]
     Active Substance: UBIDECARENONE

REACTIONS (4)
  - Dysgeusia [None]
  - Weight decreased [None]
  - Gastric disorder [None]
  - Decreased appetite [None]

NARRATIVE: CASE EVENT DATE: 20160104
